FAERS Safety Report 7627061-0 (Version None)
Quarter: 2011Q3

REPORT INFORMATION
  Report Type: 
  Country: None (occurrence: None)
  Receive Date: 20110721
  Receipt Date: 20090128
  Transmission Date: 20111222
  Serious: Yes (Hospitalization, Other)
  Sender: FDA-Public Use
  Company Number: DE-GENENTECH-321751

PATIENT
  Age: 89 Year
  Sex: Female

DRUGS (1)
  1. LUCENTIS [Suspect]
     Indication: AGE-RELATED MACULAR DEGENERATION
     Dosage: UNK
     Dates: start: 20110730

REACTIONS (6)
  - MYOCARDIAL INFARCTION [None]
  - RETINAL VASCULAR DISORDER [None]
  - VISION BLURRED [None]
  - VISUAL ACUITY REDUCED [None]
  - DRY EYE [None]
  - INTRAOCULAR PRESSURE INCREASED [None]
